FAERS Safety Report 25490565 (Version 5)
Quarter: 2025Q3

REPORT INFORMATION
  Report Type: Spontaneous
  Country: EU (occurrence: EU)
  Receive Date: 20250627
  Receipt Date: 20250808
  Transmission Date: 20251021
  Serious: Yes (Hospitalization, Other)
  Sender: AUROBINDO
  Company Number: EU-ZENTIVA-2025-ZT-039355

PATIENT
  Age: 75 Year
  Sex: Male

DRUGS (1)
  1. OLMESARTAN [Suspect]
     Active Substance: OLMESARTAN
     Indication: Hypertension
     Route: 065

REACTIONS (5)
  - Enterocolitis [Recovered/Resolved]
  - Sprue-like enteropathy [Unknown]
  - Diarrhoea [Unknown]
  - Hypotension [Unknown]
  - Renal disorder [Unknown]
